FAERS Safety Report 8996218 (Version 1)
Quarter: 2013Q1

REPORT INFORMATION
  Report Type: Spontaneous
  Country: JP (occurrence: JP)
  Receive Date: 20130103
  Receipt Date: 20130103
  Transmission Date: 20140127
  Serious: Yes (Hospitalization)
  Sender: FDA-Public Use
  Company Number: JP-OTSUKA-JP-2012-17152

PATIENT
  Sex: Male

DRUGS (2)
  1. SAMSCA [Suspect]
     Dosage: 900 MG MILLIGRAM(S), SINGLE
     Route: 048
     Dates: start: 20121205
  2. MYSLEE [Concomitant]
     Dosage: UNK UNK, SINGLE
     Route: 048
     Dates: start: 20121205

REACTIONS (2)
  - Overdose [Unknown]
  - Blood sodium decreased [None]
